FAERS Safety Report 5761074-9 (Version None)
Quarter: 2008Q2

REPORT INFORMATION
  Report Type: 
  Country: None (occurrence: None)
  Receive Date: 20080606
  Receipt Date: 20080529
  Transmission Date: 20081010
  Serious: Yes (Hospitalization)
  Sender: FDA-Public Use
  Company Number: PT-ABBOTT-08P-130-0454233-00

PATIENT
  Weight: 69 kg

DRUGS (2)
  1. HUMIRA [Suspect]
     Indication: CROHN'S DISEASE
     Route: 058
     Dates: start: 20070723, end: 20080428
  2. HUMIRA [Suspect]
     Route: 058
     Dates: start: 20080529

REACTIONS (1)
  - ARTHRITIS ENTEROPATHIC [None]
